FAERS Safety Report 20819440 (Version 1)
Quarter: 2022Q2

REPORT INFORMATION
  Report Type: Spontaneous
  Country: US (occurrence: US)
  Receive Date: 20220512
  Receipt Date: 20220512
  Transmission Date: 20220721
  Serious: Yes (Hospitalization)
  Sender: FDA-Public Use
  Company Number: US-NOVOPROD-916718

PATIENT
  Age: 79 Year
  Sex: Female

DRUGS (2)
  1. OZEMPIC [Suspect]
     Active Substance: SEMAGLUTIDE
     Indication: Type 2 diabetes mellitus
     Dosage: 0.25 MG, QW
     Route: 058
     Dates: start: 2021
  2. OZEMPIC [Suspect]
     Active Substance: SEMAGLUTIDE
     Dosage: 0.5 MG, QW
     Route: 058

REACTIONS (6)
  - Syncope [Not Recovered/Not Resolved]
  - Hyperventilation [Unknown]
  - Hypertension [Not Recovered/Not Resolved]
  - Dehydration [Unknown]
  - Vomiting [Not Recovered/Not Resolved]
  - Nausea [Not Recovered/Not Resolved]

NARRATIVE: CASE EVENT DATE: 20210101
